FAERS Safety Report 10271097 (Version 1)
Quarter: 2014Q3

REPORT INFORMATION
  Report Type: Report from Study
  Country: CA (occurrence: CA)
  Receive Date: 20140701
  Receipt Date: 20140701
  Transmission Date: 20150326
  Serious: Yes (Hospitalization)
  Sender: FDA-Public Use
  Company Number: CA-BRISTOL-MYERS SQUIBB COMPANY-21116892

PATIENT
  Age: 58 Year
  Sex: Female

DRUGS (8)
  1. FOLIC ACID. [Concomitant]
     Active Substance: FOLIC ACID
  2. METHOTREXATE [Concomitant]
     Active Substance: METHOTREXATE
  3. RAMIPRIL. [Concomitant]
     Active Substance: RAMIPRIL
  4. SULFASALAZINE. [Concomitant]
     Active Substance: SULFASALAZINE
  5. PREDNISONE. [Concomitant]
     Active Substance: PREDNISONE
  6. DICLOFENAC [Concomitant]
     Active Substance: DICLOFENAC
  7. ORENCIA [Suspect]
     Active Substance: ABATACEPT
     Indication: RHEUMATOID ARTHRITIS
     Dosage: ON 19JUN14 INFUSION WAS CNACELLED
     Route: 042
     Dates: start: 20121012
  8. PLAQUENIL [Concomitant]
     Active Substance: HYDROXYCHLOROQUINE SULFATE

REACTIONS (2)
  - Abdominal pain [Unknown]
  - Blood urine present [Unknown]

NARRATIVE: CASE EVENT DATE: 201406
